FAERS Safety Report 4887129-9 (Version None)
Quarter: 2006Q1

REPORT INFORMATION
  Report Type: 
  Country: None (occurrence: None)
  Receive Date: 20060120
  Receipt Date: 20050131
  Transmission Date: 20060701
  Serious: Yes (Hospitalization)
  Sender: FDA-Public Use
  Company Number: US-MERCK-0502USA00106

PATIENT
  Age: 53 Year
  Sex: Male
  Weight: 95 kg

DRUGS (8)
  1. VIOXX [Suspect]
     Indication: ARTHRITIS
     Route: 048
     Dates: start: 20001101, end: 20040901
  2. PRAVACHOL [Concomitant]
     Indication: HYPERLIPIDAEMIA
     Route: 065
     Dates: start: 19990101
  3. ZOCOR [Concomitant]
     Indication: HYPERLIPIDAEMIA
     Route: 048
     Dates: start: 19990101
  4. LOPID [Concomitant]
     Indication: HYPERLIPIDAEMIA
     Route: 065
     Dates: start: 19990101
  5. MOTRIN [Concomitant]
     Indication: BACK PAIN
     Route: 065
     Dates: start: 19850101
  6. FLEXERIL [Concomitant]
     Indication: OSTEOARTHRITIS
     Route: 048
  7. AMBIEN [Concomitant]
     Route: 065
  8. ASPIRIN [Concomitant]
     Indication: PROPHYLAXIS
     Route: 065
     Dates: start: 20021120

REACTIONS (4)
  - ACUTE MYOCARDIAL INFARCTION [None]
  - ANXIETY [None]
  - CHEST PAIN [None]
  - CORONARY ARTERY STENOSIS [None]
